FAERS Safety Report 6498510-9 (Version None)
Quarter: 2009Q4

REPORT INFORMATION
  Report Type: 
  Country: None (occurrence: None)
  Receive Date: 20091215
  Receipt Date: 20091204
  Transmission Date: 20100525
  Serious: Yes (Hospitalization)
  Sender: FDA-Public Use
  Company Number: BE-MERCK-0912BEL00005

PATIENT
  Age: 75 Year
  Sex: Male

DRUGS (14)
  1. JANUVIA [Suspect]
     Indication: TYPE 2 DIABETES MELLITUS
     Route: 048
     Dates: start: 20090501, end: 20090101
  2. JANUVIA [Suspect]
     Route: 048
     Dates: start: 20090101, end: 20091001
  3. JANUVIA [Suspect]
     Route: 048
     Dates: start: 20090101, end: 20090101
  4. FONDAPARINUX SODIUM [Concomitant]
     Route: 058
  5. METFORMIN HYDROCHLORIDE [Concomitant]
     Indication: TYPE 2 DIABETES MELLITUS
     Route: 048
  6. ALLOPURINOL [Concomitant]
     Route: 048
  7. NEBIVOLOL HYDROCHLORIDE [Concomitant]
     Route: 048
  8. CLOPIDOGREL BISULFATE [Concomitant]
     Route: 048
  9. ASPIRIN [Concomitant]
     Route: 048
  10. LERCANIDIPINE HYDROCHLORIDE [Concomitant]
     Route: 048
  11. PERINDOPRIL ERBUMINE [Concomitant]
     Route: 048
  12. ATORVASTATIN CALCIUM [Concomitant]
     Indication: HYPERCHOLESTEROLAEMIA
     Route: 048
  13. MOLSIDOMINE [Concomitant]
     Route: 048
  14. GLIMEPIRIDE [Concomitant]
     Route: 048

REACTIONS (3)
  - ERUCTATION [None]
  - MALAISE [None]
  - PAIN [None]
